FAERS Safety Report 14024721 (Version 1)
Quarter: 2017Q3

REPORT INFORMATION
  Report Type: Spontaneous
  Country: US (occurrence: US)
  Receive Date: 20170928
  Receipt Date: 20170928
  Transmission Date: 20171128
  Serious: Yes (Other)
  Sender: FDA-Public Use
  Company Number: US-SA-2017SA019812

PATIENT
  Age: 53 Year
  Sex: Female

DRUGS (5)
  1. VITAMIN D [Concomitant]
     Active Substance: CHOLECALCIFEROL
  2. BACLOFEN. [Concomitant]
     Active Substance: BACLOFEN
  3. SERTRALINE HYDROCHLORIDE. [Concomitant]
     Active Substance: SERTRALINE HYDROCHLORIDE
  4. VESICARE [Concomitant]
     Active Substance: SOLIFENACIN SUCCINATE
  5. AUBAGIO [Suspect]
     Active Substance: TERIFLUNOMIDE
     Indication: MULTIPLE SCLEROSIS
     Route: 048
     Dates: end: 20170120

REACTIONS (5)
  - Depression [Unknown]
  - Balance disorder [Unknown]
  - Gait disturbance [Unknown]
  - Multiple sclerosis relapse [Unknown]
  - Impaired work ability [Unknown]
